FAERS Safety Report 8808721 (Version 1)
Quarter: 2012Q4

REPORT INFORMATION
  Report Type: Spontaneous
  Country: BR (occurrence: None)
  Receive Date: 20120921
  Receipt Date: 20120921
  Transmission Date: 20130627
  Serious: Yes (Hospitalization)
  Sender: FDA-Public Use
  Company Number: DSA_59745_2012

PATIENT
  Age: 54 Year
  Sex: Female

DRUGS (1)
  1. ELIDEL [Suspect]
     Indication: VITILIGO
     Route: 061
     Dates: start: 20120808, end: 20120830

REACTIONS (7)
  - Limb injury [None]
  - Erysipelas [None]
  - Blood pressure increased [None]
  - Heart rate increased [None]
  - Malaise [None]
  - Dizziness [None]
  - Treatment noncompliance [None]
